FAERS Safety Report 8599686-X (Version None)
Quarter: 2012Q3

REPORT INFORMATION
  Report Type: 
  Country: None (occurrence: None)
  Receive Date: 20120816
  Receipt Date: 20120802
  Transmission Date: 20120928
  Serious: Yes (Hospitalization)
  Sender: FDA-Public Use
  Company Number: GB-MYLANLABS-2012S1011214

PATIENT
  Age: 74 Year
  Sex: Male

DRUGS (7)
  1. GEMCITABINE HYDROCHLORIDE [Concomitant]
     Indication: PRODUCT USED FOR UNKNOWN INDICATION
     Route: 042
     Dates: start: 20120404, end: 20120404
  2. NITROFURANTOIN [Concomitant]
     Indication: PRODUCT USED FOR UNKNOWN INDICATION
     Dates: start: 20120401, end: 20120408
  3. CIPROFLOXACIN [Concomitant]
     Indication: PRODUCT USED FOR UNKNOWN INDICATION
     Route: 048
     Dates: start: 20120330, end: 20120406
  4. TAMSULOSIN HCL [Suspect]
     Indication: PRODUCT USED FOR UNKNOWN INDICATION
     Route: 048
     Dates: start: 20110404, end: 20120423
  5. AMIODARONE HCL [Suspect]
     Indication: PRODUCT USED FOR UNKNOWN INDICATION
     Route: 048
     Dates: start: 19920305
  6. CISPLATIN [Suspect]
     Indication: PRODUCT USED FOR UNKNOWN INDICATION
     Route: 042
     Dates: start: 20120404, end: 20120404
  7. SUTENT [Suspect]
     Indication: TRANSITIONAL CELL CARCINOMA
     Dates: start: 20120404, end: 20120408

REACTIONS (8)
  - HAEMATURIA [None]
  - HYPOVOLAEMIA [None]
  - INFECTION [None]
  - BLOOD SODIUM DECREASED [None]
  - NAUSEA [None]
  - ORTHOSTATIC HYPOTENSION [None]
  - AUTONOMIC NEUROPATHY [None]
  - HYPOPHAGIA [None]
